FAERS Safety Report 4390828-9 (Version None)
Quarter: 2004Q3

REPORT INFORMATION
  Report Type: 
  Country: None (occurrence: None)
  Receive Date: 20040706
  Receipt Date: 20040706
  Transmission Date: 20050211
  Serious: Yes (Hospitalization)
  Sender: FDA-Public Use
  Company Number: None

PATIENT
  Age: 49 Year
  Sex: Male
  Weight: 125 kg

DRUGS (6)
  1. CETACAINE SPRAY [Suspect]
     Indication: PEPTIC ULCER
     Dosage: ONE TIME SPRAY
     Dates: start: 20040401, end: 20040401
  2. PROTONIX [Concomitant]
  3. DEMEROL [Concomitant]
  4. VERSED [Concomitant]
  5. XOPENEX [Concomitant]
  6. ATROVENT [Concomitant]

REACTIONS (1)
  - ACQUIRED METHAEMOGLOBINAEMIA [None]
